FAERS Safety Report 5417882-7 (Version None)
Quarter: 2007Q3

REPORT INFORMATION
  Report Type: 
  Country: None (occurrence: None)
  Receive Date: 20070815
  Receipt Date: 20070803
  Transmission Date: 20080115
  Serious: Yes (Death, Other)
  Sender: FDA-Public Use
  Company Number: GXKR2007GB06743

PATIENT
  Age: 95 Year
  Sex: Male

DRUGS (5)
  1. GABAPENTIN [Suspect]
     Indication: FACIAL PAIN
     Dosage: 300 MG, TID, ORAL
     Route: 048
  2. AMLODIPINE [Concomitant]
  3. ENALAPRIL (ENALAPRIL) [Concomitant]
  4. FUROSEMIDE [Concomitant]
  5. SALBUTAMOL (SALBUTAMOL) [Concomitant]

REACTIONS (1)
  - TREMOR [None]
